FAERS Safety Report 4646640-6 (Version None)
Quarter: 2005Q2

REPORT INFORMATION
  Report Type: 
  Country: None (occurrence: None)
  Receive Date: 20050426
  Receipt Date: 20050304
  Transmission Date: 20051028
  Serious: Yes (Death)
  Sender: FDA-Public Use
  Company Number: 2005S1000985

PATIENT
  Age: 57 Year
  Sex: Male

DRUGS (5)
  1. CLOZAPINE [Suspect]
     Indication: SCHIZOPHRENIA
     Dosage: SEE IMAGE
     Route: 048
     Dates: start: 20041012, end: 20050101
  2. CLOZAPINE [Suspect]
     Indication: SCHIZOPHRENIA
     Dosage: SEE IMAGE
     Route: 048
     Dates: start: 20041012, end: 20050101
  3. CLOMIPRAMINE HCL [Suspect]
     Dosage: 200 MG; HS; PO
     Route: 048
  4. OLANZAPINE [Concomitant]
  5. LORAZEPAM [Concomitant]

REACTIONS (5)
  - FALL [None]
  - LUNG INJURY [None]
  - MULTIPLE DRUG OVERDOSE [None]
  - PNEUMONIA [None]
  - RIB FRACTURE [None]
